FAERS Safety Report 7949286-7 (Version None)
Quarter: 2011Q4

REPORT INFORMATION
  Report Type: 
  Country: None (occurrence: None)
  Receive Date: 20111123
  Receipt Date: 20111114
  Transmission Date: 20120403
  Serious: Yes (Other)
  Sender: FDA-Public Use
  Company Number: ACO_27362_2011

PATIENT
  Age: 48 Year
  Sex: Female

DRUGS (2)
  1. AMPYRA [Suspect]
     Indication: GAIT DISTURBANCE
     Dosage: 10 MG, BID; 10 MG,BID
     Dates: start: 20110310, end: 20110401
  2. AMPYRA [Suspect]
     Indication: GAIT DISTURBANCE
     Dosage: 10 MG, BID; 10 MG,BID
     Dates: start: 20110101, end: 20111001

REACTIONS (3)
  - GAIT DISTURBANCE [None]
  - PERIPHERAL VASCULAR DISORDER [None]
  - SPEECH DISORDER [None]
